FAERS Safety Report 23682787 (Version 1)
Quarter: 2024Q1

REPORT INFORMATION
  Report Type: Spontaneous
  Country: CA (occurrence: CA)
  Receive Date: 20240328
  Receipt Date: 20240328
  Transmission Date: 20240410
  Serious: Yes (Hospitalization)
  Sender: FDA-Public Use
  Company Number: CA-MYLANLABS-2024M1028105

PATIENT
  Age: 32 Year
  Sex: Female

DRUGS (5)
  1. VERAPAMIL [Suspect]
     Active Substance: VERAPAMIL HYDROCHLORIDE
     Indication: Product used for unknown indication
     Dosage: UNK
     Route: 065
  2. IBUPROFEN [Concomitant]
     Active Substance: IBUPROFEN
     Dosage: UNK, QD (1 EVERY 1 DAYS)
     Route: 065
  3. OMEPRAZOLE [Concomitant]
     Active Substance: OMEPRAZOLE
     Dosage: UNK, QD (1 EVERY 1 DAYS)
     Route: 065
  4. PAROXETINE [Concomitant]
     Active Substance: PAROXETINE
     Dosage: UNK, QD (1 EVERY 1 DAYS)
     Route: 065
  5. VALACYCLOVIR [Concomitant]
     Active Substance: VALACYCLOVIR HYDROCHLORIDE
     Dosage: UNK, QD (1 EVERY 1 DAYS)
     Route: 065

REACTIONS (7)
  - Chills [Recovering/Resolving]
  - Pyrexia [Recovering/Resolving]
  - Abdominal pain [Recovering/Resolving]
  - Rash morbilliform [Recovering/Resolving]
  - Nausea [Recovering/Resolving]
  - Urticaria [Recovering/Resolving]
  - Vomiting [Recovering/Resolving]
